FAERS Safety Report 23231590 (Version 2)
Quarter: 2023Q4

REPORT INFORMATION
  Report Type: Other
  Country: JP (occurrence: JP)
  Receive Date: 20231127
  Receipt Date: 20231211
  Transmission Date: 20240109
  Serious: Yes (Hospitalization, Other)
  Sender: FDA-Public Use
  Company Number: JP-Merck Healthcare KGaA-2023488242

PATIENT
  Age: 65 Year
  Sex: Male
  Weight: 50 kg

DRUGS (5)
  1. METGLUCO [Suspect]
     Active Substance: METFORMIN HYDROCHLORIDE
     Indication: Type 2 diabetes mellitus
  2. SITAGLIPTIN [Suspect]
     Active Substance: SITAGLIPTIN
     Indication: Product used for unknown indication
  3. INSULIN DEGLUDEC [Suspect]
     Active Substance: INSULIN DEGLUDEC
     Indication: Product used for unknown indication
  4. MITIGLINIDE [Suspect]
     Active Substance: MITIGLINIDE
     Indication: Product used for unknown indication
  5. VOGLIBOSE [Suspect]
     Active Substance: VOGLIBOSE
     Indication: Product used for unknown indication

REACTIONS (6)
  - Lactic acidosis [Recovered/Resolved]
  - Decreased appetite [Unknown]
  - Alcohol abuse [Unknown]
  - Renal impairment [Recovered/Resolved]
  - Contraindicated product administered [Unknown]
  - Blood ketone body increased [Unknown]
